FAERS Safety Report 15790681 (Version 7)
Quarter: 2019Q3

REPORT INFORMATION
  Report Type: Spontaneous
  Country: US (occurrence: US)
  Receive Date: 20190104
  Receipt Date: 20190912
  Transmission Date: 20191004
  Serious: Yes (Other)
  Sender: FDA-Public Use
  Company Number: US-VIFOR (INTERNATIONAL) INC.-VIT-2019-00027

PATIENT
  Age: 67 Year
  Sex: Female

DRUGS (3)
  1. VELTASSA [Suspect]
     Active Substance: PATIROMER
     Route: 048
     Dates: start: 20190204
  2. VELTASSA [Suspect]
     Active Substance: PATIROMER
     Indication: HYPERKALAEMIA
     Route: 048
     Dates: start: 20190101
  3. VELTASSA [Suspect]
     Active Substance: PATIROMER
     Dates: start: 2019

REACTIONS (15)
  - Delusion [Unknown]
  - Malaise [Unknown]
  - Nausea [Unknown]
  - Confusional state [Unknown]
  - Blood potassium abnormal [Unknown]
  - Adverse drug reaction [Unknown]
  - Ill-defined disorder [Unknown]
  - Discomfort [Not Recovered/Not Resolved]
  - Chronic kidney disease [Unknown]
  - Vomiting [Not Recovered/Not Resolved]
  - Off label use [Unknown]
  - Headache [Unknown]
  - Asthenia [Unknown]
  - Incorrect dose administered [Unknown]
  - Feeling cold [Unknown]

NARRATIVE: CASE EVENT DATE: 2019
